FAERS Safety Report 14690297 (Version 1)
Quarter: 2018Q1

REPORT INFORMATION
  Report Type: Spontaneous
  Country: NO (occurrence: NO)
  Receive Date: 20180328
  Receipt Date: 20180328
  Transmission Date: 20180509
  Serious: Yes (Other)
  Sender: FDA-Public Use
  Company Number: NO-SEPTODONT-201804573

PATIENT
  Age: 17 Year
  Sex: Female

DRUGS (2)
  1. SEPTOCAINE [Suspect]
     Active Substance: ARTICAINE HYDROCHLORIDE\EPINEPHRINE BITARTRATE
     Indication: DENTAL CARE
     Dosage: 2/10 OF A DOSAGE FORM GIVEN.
     Route: 004
     Dates: start: 20180301, end: 20180301
  2. TOPICALE ASSORTED FLAVOUR [Concomitant]
     Indication: DENTAL CARE
     Route: 003
     Dates: start: 20180301, end: 20180301

REACTIONS (2)
  - Dental necrosis [Not Recovered/Not Resolved]
  - Gingival pain [Not Recovered/Not Resolved]

NARRATIVE: CASE EVENT DATE: 20180301
